FAERS Safety Report 26099791 (Version 1)
Quarter: 2025Q4

REPORT INFORMATION
  Report Type: Spontaneous
  Country: US (occurrence: US)
  Receive Date: 20251128
  Receipt Date: 20251128
  Transmission Date: 20260117
  Serious: No
  Sender: ALKEM
  Company Number: US-ALKEM LABORATORIES LIMITED-US-ALKEM-2025-03920

PATIENT
  Age: 92 Year
  Sex: Female

DRUGS (2)
  1. OLANZAPINE [Suspect]
     Active Substance: OLANZAPINE
     Indication: Affective disorder
     Dosage: 2.5 MILLIGRAM, HS (AT NIGHT)
     Route: 065
  2. ESCITALOPRAM [Concomitant]
     Active Substance: ESCITALOPRAM OXALATE
     Indication: Affective disorder
     Dosage: 5 MILLIGRAM, QD
     Route: 065

REACTIONS (1)
  - Anaemia [Recovering/Resolving]
